FAERS Safety Report 6585184-1 (Version None)
Quarter: 2010Q1

REPORT INFORMATION
  Report Type: 
  Country: None (occurrence: None)
  Receive Date: 20100217
  Receipt Date: 20100209
  Transmission Date: 20100710
  Serious: Yes (Death, Hospitalization)
  Sender: FDA-Public Use
  Company Number: US-ALLERGAN-1001760US

PATIENT
  Age: 32 Year
  Sex: Female

DRUGS (2)
  1. BOTOX [Suspect]
     Indication: CEREBRAL PALSY
     Dosage: UNK
     Route: 030
     Dates: start: 20031001, end: 20031001
  2. BOTOX [Suspect]
     Dosage: UNK
     Route: 030
     Dates: start: 20050101, end: 20050101

REACTIONS (2)
  - ORGAN FAILURE [None]
  - WEIGHT DECREASED [None]
